FAERS Safety Report 6100625-1 (Version None)
Quarter: 2009Q1

REPORT INFORMATION
  Report Type: 
  Country: None (occurrence: None)
  Receive Date: 20090227
  Receipt Date: 20090227
  Transmission Date: 20090719
  Serious: Yes (Life-Threatening)
  Sender: FDA-Public Use
  Company Number: None

PATIENT
  Sex: Female
  Weight: 91.6266 kg

DRUGS (3)
  1. CIPROFLOXACIN [Suspect]
     Indication: BURN INFECTION
     Dosage: 500 MG 1 TAB 2X A DAY PO
     Route: 048
     Dates: start: 20090224
  2. CIPROFLOXACIN [Suspect]
     Indication: BURNS FIRST DEGREE
     Dosage: 500 MG 1 TAB 2X A DAY PO
     Route: 048
     Dates: start: 20090224
  3. CIPROFLOXACIN [Suspect]
     Indication: BURNS SECOND DEGREE
     Dosage: 500 MG 1 TAB 2X A DAY PO
     Route: 048
     Dates: start: 20090224

REACTIONS (5)
  - FACE OEDEMA [None]
  - LIP OEDEMA [None]
  - LOCALISED OEDEMA [None]
  - OEDEMA [None]
  - TONGUE OEDEMA [None]
